FAERS Safety Report 12904686 (Version 7)
Quarter: 2017Q3

REPORT INFORMATION
  Report Type: Report from Study
  Country: None (occurrence: IT)
  Receive Date: 20161102
  Receipt Date: 20170912
  Transmission Date: 20171127
  Serious: Yes (Life-Threatening, Hospitalization)
  Sender: FDA-Public Use
  Company Number: IT-ABBVIE-16P-083-1743983-00

PATIENT
  Age: 73 Year
  Sex: Male
  Weight: 62 kg

DRUGS (31)
  1. CYCLOPHOSPHAMIDE. [Suspect]
     Active Substance: CYCLOPHOSPHAMIDE
     Indication: B-CELL LYMPHOMA
     Dosage: RECENT DOSES (1215 MG) (1245MG) PRIOR TO EVENTS 21SEP16 + 12OCT16
     Route: 042
     Dates: start: 20160921
  2. RASBURICASE [Concomitant]
     Active Substance: RASBURICASE
     Indication: PROPHYLAXIS
     Dates: start: 20160919, end: 20160920
  3. FUROSEMIDE. [Concomitant]
     Active Substance: FUROSEMIDE
     Indication: PRODUCT USED FOR UNKNOWN INDICATION
     Dates: start: 20160919, end: 20160923
  4. PREDNISONE. [Concomitant]
     Active Substance: PREDNISONE
     Indication: PRODUCT USED FOR UNKNOWN INDICATION
     Dosage: TAPERING
     Dates: start: 20160902, end: 20160919
  5. MANNITOLO [Concomitant]
     Indication: CONSTIPATION
     Dates: start: 20160926, end: 20160926
  6. VINCRISTINE [Suspect]
     Active Substance: VINCRISTINE
     Indication: B-CELL LYMPHOMA
     Dosage: RECENT DOSES (2 MG) PRIOR TO EVENTS 21SEP16 + 12OCT16
     Route: 042
     Dates: start: 20160921
  7. RASBURICASE [Concomitant]
     Active Substance: RASBURICASE
     Indication: PROPHYLAXIS
     Dates: start: 20160924, end: 20160924
  8. ENOXAPARIN [Concomitant]
     Active Substance: ENOXAPARIN
     Indication: THROMBOSIS
     Dates: start: 20160914, end: 20170210
  9. FLUCONAZOLE. [Concomitant]
     Active Substance: FLUCONAZOLE
     Indication: INFECTION PROPHYLAXIS
     Dates: start: 20160906, end: 20160923
  10. PROMAZINE HYDROCHLORIDE [Concomitant]
     Active Substance: PROMAZINE HYDROCHLORIDE
     Indication: HICCUPS
     Dates: start: 20161022, end: 20161025
  11. CHLORPHENAMINE [Concomitant]
     Active Substance: CHLORPHENIRAMINE MALEATE
     Indication: PREMEDICATION
     Dates: start: 20160920, end: 20170221
  12. AMISULPRIDE [Concomitant]
     Active Substance: AMISULPRIDE
     Indication: DEPRESSION
     Dates: start: 20160908
  13. LACTULOSE. [Concomitant]
     Active Substance: LACTULOSE
     Indication: SUPPORTIVE CARE
     Dates: start: 20160918, end: 20160927
  14. RITUXIMAB. [Suspect]
     Active Substance: RITUXIMAB
     Indication: B-CELL LYMPHOMA
     Dosage: MOST RECENT DOSES (622.5 MG) PRIOR TO EVENTS: 20SEP16 + 12OCT16
     Route: 042
     Dates: start: 20160920
  15. BACTRIM [Concomitant]
     Active Substance: SULFAMETHOXAZOLE\TRIMETHOPRIM
     Indication: INFECTION PROPHYLAXIS
     Dates: start: 20160921
  16. FLUCONAZOLE. [Concomitant]
     Active Substance: FLUCONAZOLE
     Dates: start: 20161021, end: 20161021
  17. PREDNISONE. [Concomitant]
     Active Substance: PREDNISONE
     Dates: start: 20160925, end: 20161003
  18. ALLOPURINOL. [Concomitant]
     Active Substance: ALLOPURINOL
     Indication: PROPHYLAXIS
     Dates: start: 20160921, end: 20170307
  19. MAGALDRATE [Concomitant]
     Active Substance: MAGALDRATE
     Indication: PROPHYLAXIS
     Dates: start: 20160918, end: 20161006
  20. VENETOCLAX. [Suspect]
     Active Substance: VENETOCLAX
     Indication: B-CELL LYMPHOMA
     Dosage: RECENT DOSES (800 MG) (100MG) PRIOR TO EVENTS 30SEP16 +  20 OCT 2016
     Route: 048
     Dates: start: 20160924
  21. DOXORUBICIN [Suspect]
     Active Substance: DOXORUBICIN
     Indication: B-CELL LYMPHOMA
     Dosage: RECENT DOSES (81 MG) (83MG) PRIOR TO EVENTS 21SEP16 + 12OCT16
     Route: 042
     Dates: start: 20160921
  22. PREDNISONE. [Suspect]
     Active Substance: PREDNISONE
     Indication: B-CELL LYMPHOMA
     Dosage: RECENT DOSES PRIOR TO EVENTS: 24SEP16+16OCT16 D1-5 OF  21 DAY CYCLE
     Route: 048
     Dates: start: 20160902
  23. METHOTREXATE. [Concomitant]
     Active Substance: METHOTREXATE
     Indication: PROPHYLAXIS
     Route: 037
     Dates: start: 20160922, end: 20160922
  24. LEVOFLOXACIN. [Concomitant]
     Active Substance: LEVOFLOXACIN
     Indication: PROPHYLAXIS
     Dates: start: 20160930, end: 20160930
  25. OMEPRAZOLE. [Concomitant]
     Active Substance: OMEPRAZOLE
     Indication: PROPHYLAXIS
     Dates: start: 20160830, end: 20170307
  26. ONDANSETRON [Concomitant]
     Active Substance: ONDANSETRON
     Indication: NAUSEA
     Dates: start: 20160920, end: 20160923
  27. PARACETAMOL [Concomitant]
     Active Substance: ACETAMINOPHEN
     Indication: PREMEDICATION
     Dates: start: 20160920, end: 20170221
  28. FILGRASTIM [Concomitant]
     Active Substance: FILGRASTIM
     Indication: PROPHYLAXIS
     Dates: start: 20160924, end: 20161002
  29. ACYCLOVIR. [Concomitant]
     Active Substance: ACYCLOVIR
     Indication: PROPHYLAXIS
     Dates: start: 20160922, end: 20170307
  30. PEGFILGRASTIM [Concomitant]
     Active Substance: PEGFILGRASTIM
     Indication: PRODUCT USED FOR UNKNOWN INDICATION
     Dates: start: 20161013, end: 20161013
  31. RED CELLS PACKED [Concomitant]
     Indication: ANAEMIA
     Dates: start: 20161021, end: 20161021

REACTIONS (2)
  - Febrile neutropenia [Recovered/Resolved]
  - Pseudomonal sepsis [Recovered/Resolved]

NARRATIVE: CASE EVENT DATE: 20160930
